FAERS Safety Report 7044902-9 (Version None)
Quarter: 2010Q4

REPORT INFORMATION
  Report Type: 
  Country: None (occurrence: None)
  Receive Date: 20101014
  Receipt Date: 20101007
  Transmission Date: 20110411
  Serious: Yes (Life-Threatening, Hospitalization)
  Sender: FDA-Public Use
  Company Number: FR-JNJFOC-20101001813

PATIENT
  Age: 90 Year
  Sex: Male

DRUGS (2)
  1. DURAGESIC-100 [Suspect]
     Indication: PRODUCT USED FOR UNKNOWN INDICATION
     Route: 062
  2. SKENAN [Concomitant]

REACTIONS (6)
  - BLOOD PRESSURE DECREASED [None]
  - EATING DISORDER [None]
  - HEART RATE DECREASED [None]
  - MEDICATION ERROR [None]
  - SOMNOLENCE [None]
  - SPEECH DISORDER [None]
